FAERS Safety Report 9586307 (Version 2)
Quarter: 2013Q4

REPORT INFORMATION
  Report Type: Spontaneous
  Country: GB (occurrence: GB)
  Receive Date: 20131003
  Receipt Date: 20131231
  Transmission Date: 20140711
  Serious: Yes (Life-Threatening, Hospitalization)
  Sender: FDA-Public Use
  Company Number: GB-JNJFOC-20131000190

PATIENT
  Age: 53 Year
  Sex: Male
  Weight: 103.4 kg

DRUGS (13)
  1. XARELTO [Suspect]
     Indication: EMBOLISM VENOUS
     Route: 048
     Dates: start: 20130418, end: 20130910
  2. XARELTO [Suspect]
     Indication: DEEP VEIN THROMBOSIS
     Route: 048
     Dates: start: 20130418, end: 20130910
  3. FOLIC ACID [Concomitant]
     Route: 065
  4. BENDROFLUMETHIAZIDE [Concomitant]
     Route: 065
  5. CO-CODAMOL [Concomitant]
     Route: 065
  6. DIAZEPAM [Concomitant]
     Route: 065
  7. TRAMADOL [Concomitant]
     Route: 065
  8. METHOTREXATE [Concomitant]
     Route: 065
  9. RANITIDINE [Concomitant]
     Route: 065
  10. SALBUTAMOL [Concomitant]
     Route: 065
  11. SERETIDE [Concomitant]
     Route: 065
  12. IMIPRAMINE [Concomitant]
     Route: 065
  13. GAVISCON (AL HYDROX, CACO3, NA BICARBONATE [Concomitant]
     Route: 065

REACTIONS (2)
  - Pulmonary embolism [Not Recovered/Not Resolved]
  - Drug ineffective [Unknown]
